FAERS Safety Report 10538063 (Version 1)
Quarter: 2014Q4

REPORT INFORMATION
  Report Type: Spontaneous
  Country: US (occurrence: None)
  Receive Date: 20141022
  Receipt Date: 20141022
  Transmission Date: 20150529
  Serious: Yes (Hospitalization)
  Sender: FDA-Public Use
  Company Number: None

PATIENT
  Age: 56 Year
  Sex: Female
  Weight: 66.2 kg

DRUGS (12)
  1. FOSAPREPITANT [Concomitant]
     Active Substance: FOSAPREPITANT
  2. LORAZEPAM. [Concomitant]
     Active Substance: LORAZEPAM
  3. LISINOPRIL. [Concomitant]
     Active Substance: LISINOPRIL
  4. LORAZEPAM. [Concomitant]
     Active Substance: LORAZEPAM
  5. DOXORUBICIN [Concomitant]
     Active Substance: DOXORUBICIN
  6. NEULASTA [Suspect]
     Active Substance: PEGFILGRASTIM
     Indication: PROPHYLAXIS
     Dosage: EVERY 14 DAYS.
     Route: 058
     Dates: start: 20140725, end: 20140725
  7. DEXAMETHASONE. [Concomitant]
     Active Substance: DEXAMETHASONE
  8. NEULASTA [Suspect]
     Active Substance: PEGFILGRASTIM
     Indication: NEUTROPENIA
     Dosage: EVERY 14 DAYS.
     Route: 058
     Dates: start: 20140725, end: 20140725
  9. PALONOSETRON [Concomitant]
     Active Substance: PALONOSETRON
  10. LORATADINE. [Concomitant]
     Active Substance: LORATADINE
  11. LEVOTHYROXINE [Concomitant]
     Active Substance: LEVOTHYROXINE
  12. CYCLOPHOSPHAMIDE. [Concomitant]
     Active Substance: CYCLOPHOSPHAMIDE

REACTIONS (5)
  - Bone pain [None]
  - Dyspnoea [None]
  - Chest pain [None]
  - Anxiety [None]
  - Headache [None]

NARRATIVE: CASE EVENT DATE: 20140728
